FAERS Safety Report 23110245 (Version 1)
Quarter: 2023Q4

REPORT INFORMATION
  Report Type: Spontaneous
  Country: JP (occurrence: JP)
  Receive Date: 20231026
  Receipt Date: 20231026
  Transmission Date: 20240110
  Serious: Yes (Hospitalization, Other)
  Sender: FDA-Public Use
  Company Number: JP-UCBJ-CD202306330UCBPHAPROD

PATIENT
  Age: 43 Year
  Sex: Female
  Weight: 51 kg

DRUGS (2)
  1. BIMZELX [Suspect]
     Active Substance: BIMEKIZUMAB-BKZX
     Indication: Pustular psoriasis
     Dosage: 320 MILLIGRAM, EV 4 WEEKS
     Route: 058
     Dates: start: 20230517, end: 20230615
  2. IXEKIZUMAB [Concomitant]
     Active Substance: IXEKIZUMAB
     Indication: Product used for unknown indication
     Dosage: UNK
     Dates: start: 20230502

REACTIONS (3)
  - Anaphylactic reaction [Recovered/Resolved]
  - Administration site erythema [Unknown]
  - Administration site reaction [Recovered/Resolved]

NARRATIVE: CASE EVENT DATE: 20230517
